FAERS Safety Report 5441410-3 (Version None)
Quarter: 2007Q3

REPORT INFORMATION
  Report Type: 
  Country: None (occurrence: None)
  Receive Date: 20070828
  Receipt Date: 20070828
  Transmission Date: 20080115
  Serious: No
  Sender: FDA-Public Use
  Company Number: None

PATIENT
  Sex: Female
  Weight: 83.9154 kg

DRUGS (2)
  1. FLUCONAZOLE [Suspect]
     Indication: DISEASE RECURRENCE
     Dosage: 150MG AS NEEDED PO
     Route: 048
     Dates: start: 20070301, end: 20070826
  2. FLUCONAZOLE [Suspect]
     Indication: VULVOVAGINAL MYCOTIC INFECTION
     Dosage: 150MG AS NEEDED PO
     Route: 048
     Dates: start: 20070301, end: 20070826

REACTIONS (3)
  - PRURITUS [None]
  - SWELLING [None]
  - URTICARIA [None]
